FAERS Safety Report 15625105 (Version 5)
Quarter: 2022Q3

REPORT INFORMATION
  Report Type: Spontaneous
  Country: DE (occurrence: DE)
  Receive Date: 20181116
  Receipt Date: 20220913
  Transmission Date: 20221026
  Serious: Yes (Hospitalization, Other)
  Sender: FDA-Public Use
  Company Number: PHHY2018DE154594

PATIENT
  Sex: Female

DRUGS (13)
  1. VALSARTAN [Suspect]
     Active Substance: VALSARTAN
     Indication: Product used for unknown indication
     Dosage: 160/25 MG, QD
     Route: 065
     Dates: start: 20140804
  2. VALSARTAN [Suspect]
     Active Substance: VALSARTAN
     Dosage: 160/25 MG, QD (AT ABOUT 10 AM)
     Route: 065
  3. ASPIRIN [Suspect]
     Active Substance: ASPIRIN
     Indication: Product used for unknown indication
     Dosage: UNK
     Route: 065
  4. METAMIZOLE [Suspect]
     Active Substance: METAMIZOLE
     Indication: Product used for unknown indication
     Dosage: UNK
     Route: 065
  5. TAMOXIFEN [Suspect]
     Active Substance: TAMOXIFEN
     Indication: Invasive lobular breast carcinoma
     Dosage: UNK, QD
     Route: 065
     Dates: start: 2016, end: 2018
  6. HYDROCHLOROTHIAZIDE\VALSARTAN [Concomitant]
     Active Substance: HYDROCHLOROTHIAZIDE\VALSARTAN
     Indication: Product used for unknown indication
     Dosage: 160/25 MG
     Route: 065
     Dates: start: 20180718
  7. ATORVASTATIN [Concomitant]
     Active Substance: ATORVASTATIN
     Indication: Product used for unknown indication
     Dosage: 40 MG, QD (0-0-1)
     Route: 065
  8. FALITHROM [Concomitant]
     Active Substance: PHENPROCOUMON
     Indication: Supraventricular tachycardia
     Dosage: UNK (ACCORDING TO PLAN)
     Route: 065
  9. LEVOTHYROXINE SODIUM [Concomitant]
     Active Substance: LEVOTHYROXINE SODIUM
     Indication: Product used for unknown indication
     Dosage: UNK UNK, QD (1-0-0)
     Route: 065
  10. TORSEMIDE [Concomitant]
     Active Substance: TORSEMIDE
     Indication: Product used for unknown indication
     Dosage: 20 MG, QD (1-0-0)
     Route: 065
  11. METOPROLOL SUCCINATE [Concomitant]
     Active Substance: METOPROLOL SUCCINATE
     Indication: Product used for unknown indication
     Dosage: 23.75 MG, UNK (HALF TABLET A DAY)
     Route: 065
  12. ALLOPURINOL [Concomitant]
     Active Substance: ALLOPURINOL
     Indication: Product used for unknown indication
     Dosage: 150 MG, QD (0-0-1)
     Route: 065
  13. DICLO-DIVIDO LONG [Concomitant]
     Indication: Product used for unknown indication
     Dosage: UNK UNK, PRN
     Route: 065

REACTIONS (43)
  - Breast cancer [Unknown]
  - Intestinal haemorrhage [Unknown]
  - Post procedural haemorrhage [Unknown]
  - Metastases to lymph nodes [Unknown]
  - Metastases to liver [Unknown]
  - Metastases to pelvis [Unknown]
  - Metastases to spine [Unknown]
  - Metastases to bone [Unknown]
  - Malignant neoplasm progression [Unknown]
  - Chronic kidney disease [Unknown]
  - Angina pectoris [Unknown]
  - Mitral valve incompetence [Unknown]
  - Osteochondrosis [Unknown]
  - Tricuspid valve incompetence [Unknown]
  - Pulmonary valve incompetence [Unknown]
  - Radiation injury [Unknown]
  - Tumour marker increased [Unknown]
  - Erythema [Unknown]
  - Dysphagia [Unknown]
  - Decreased appetite [Unknown]
  - Coronary artery disease [Unknown]
  - Dyspnoea exertional [Not Recovered/Not Resolved]
  - Body fat disorder [Unknown]
  - Hyperlipidaemia [Unknown]
  - Osteoarthritis [Unknown]
  - Drug hypersensitivity [Unknown]
  - Blood creatinine increased [Unknown]
  - Spinal stenosis [Unknown]
  - Musculoskeletal discomfort [Unknown]
  - Pancreatic steatosis [Unknown]
  - Renal cyst [Unknown]
  - Diverticulum intestinal [Unknown]
  - Hepatic steatosis [Unknown]
  - Facet joint syndrome [Unknown]
  - Spinal osteoarthritis [Unknown]
  - Intervertebral disc protrusion [Unknown]
  - Spinal meningeal cyst [Unknown]
  - Weight decreased [Unknown]
  - Anaemia [Unknown]
  - Pneumonitis [Unknown]
  - Asthenia [Unknown]
  - Back pain [Recovering/Resolving]
  - Nausea [Not Recovered/Not Resolved]

NARRATIVE: CASE EVENT DATE: 20141022
